FAERS Safety Report 19633493 (Version 2)
Quarter: 2021Q4

REPORT INFORMATION
  Report Type: Spontaneous
  Country: GB (occurrence: GB)
  Receive Date: 20210730
  Receipt Date: 20211020
  Transmission Date: 20220304
  Serious: Yes (Other)
  Sender: FDA-Public Use
  Company Number: GB-SUN PHARMACEUTICAL INDUSTRIES LTD-2021R1-306036

PATIENT
  Age: 51 Year
  Sex: Male

DRUGS (1)
  1. CLOZAPINE [Suspect]
     Active Substance: CLOZAPINE
     Indication: Schizophrenia
     Dosage: 225 MILLIGRAM, DAILY
     Route: 065

REACTIONS (1)
  - Blood disorder [Recovering/Resolving]
